FAERS Safety Report 24103567 (Version 2)
Quarter: 2024Q3

REPORT INFORMATION
  Report Type: Spontaneous
  Country: KR (occurrence: KR)
  Receive Date: 20240717
  Receipt Date: 20240926
  Transmission Date: 20241017
  Serious: Yes (Other)
  Sender: ROCHE
  Company Number: KR-002147023-NVSC2024KR142714

PATIENT
  Age: 69 Year
  Sex: Male

DRUGS (3)
  1. OMALIZUMAB [Suspect]
     Active Substance: OMALIZUMAB
     Indication: Pemphigoid
     Dosage: 300 MG, BIW
     Route: 065
  2. PREDNISOLONE [Suspect]
     Active Substance: PREDNISOLONE
     Indication: Pemphigoid
     Dosage: Y (PREDNISOLONE 40 MG; THRICE  DAILY) DURING THE INITIAL 2 WEEKS
     Route: 065
  3. PREDNISOLONE [Suspect]
     Active Substance: PREDNISOLONE
     Dosage: 20 MG, QD
     Route: 065

REACTIONS (3)
  - Pemphigoid [Unknown]
  - Condition aggravated [Unknown]
  - Off label use [Unknown]
